FAERS Safety Report 17531813 (Version 1)
Quarter: 2020Q1

REPORT INFORMATION
  Report Type: Spontaneous
  Country: US (occurrence: US)
  Receive Date: 20200311
  Receipt Date: 20200311
  Transmission Date: 20200409
  Serious: Yes (Other)
  Sender: FDA-Public Use
  Company Number: NVSC2020US066273

PATIENT
  Age: 49 Year
  Sex: Female

DRUGS (3)
  1. LEVOTHYROXINE. [Concomitant]
     Active Substance: LEVOTHYROXINE
     Indication: HYPOTHYROIDISM
     Route: 065
  2. FLUTICASONE. [Suspect]
     Active Substance: FLUTICASONE
     Indication: HYPERSENSITIVITY
     Dosage: UNK
     Route: 006
  3. FLUTICASONE. [Suspect]
     Active Substance: FLUTICASONE
     Indication: ASTHMA

REACTIONS (1)
  - Adrenal suppression [Unknown]
